FAERS Safety Report 12224555 (Version 1)
Quarter: 2016Q1

REPORT INFORMATION
  Report Type: Spontaneous
  Country: US (occurrence: US)
  Receive Date: 20160331
  Receipt Date: 20160331
  Transmission Date: 20160526
  Serious: No
  Sender: FDA-Public Use
  Company Number: PHEH2016US007494

PATIENT
  Age: 22 Year
  Sex: Female

DRUGS (1)
  1. ILARIS [Suspect]
     Active Substance: CANAKINUMAB
     Indication: BEHCET^S SYNDROME
     Dosage: UNK UNK, QMO
     Route: 058
     Dates: start: 20150724, end: 20160324

REACTIONS (1)
  - Off label use [Recovering/Resolving]

NARRATIVE: CASE EVENT DATE: 20150724
